FAERS Safety Report 14161208 (Version 1)
Quarter: 2017Q4

REPORT INFORMATION
  Report Type: Spontaneous
  Country: US (occurrence: US)
  Receive Date: 20171104
  Receipt Date: 20171104
  Transmission Date: 20180321
  Serious: Yes (Other)
  Sender: FDA-Public Use
  Company Number: None

PATIENT
  Age: 56 Year
  Sex: Female
  Weight: 72 kg

DRUGS (4)
  1. LEVOTHYROXINE. [Concomitant]
     Active Substance: LEVOTHYROXINE
  2. VITAMIN D [Concomitant]
     Active Substance: CHOLECALCIFEROL
  3. STATIN [Concomitant]
     Active Substance: UNSPECIFIED INGREDIENT
  4. TOVIAZ [Suspect]
     Active Substance: FESOTERODINE FUMARATE
     Indication: HYPERTONIC BLADDER
     Dosage: ?          QUANTITY:1 TABLET(S);?
     Route: 048
     Dates: start: 20170801, end: 20171023

REACTIONS (9)
  - Alopecia [None]
  - Fall [None]
  - Oral pain [None]
  - Constipation [None]
  - Dry mouth [None]
  - Dry eye [None]
  - Ligament sprain [None]
  - Palatal disorder [None]
  - Vertigo [None]

NARRATIVE: CASE EVENT DATE: 20171001
